FAERS Safety Report 7068736-4 (Version None)
Quarter: 2010Q4

REPORT INFORMATION
  Report Type: 
  Country: None (occurrence: None)
  Receive Date: 20101028
  Receipt Date: 20101022
  Transmission Date: 20110411
  Serious: Yes (Other)
  Sender: FDA-Public Use
  Company Number: BR-PFIZER INC-2010134401

PATIENT
  Age: 69 Year
  Sex: Male
  Weight: 68 kg

DRUGS (6)
  1. XALATAN [Suspect]
     Indication: GLAUCOMA
     Dosage: 3 UG, 1X/DAY, AT NIGHT
     Route: 047
     Dates: start: 20100904
  2. RIVOTRIL [Concomitant]
     Indication: NERVOUS SYSTEM DISORDER
     Dosage: 0.5 MG
  3. UNOPROST [Concomitant]
     Indication: PROSTATIC DISORDER
     Dosage: UNK
  4. ARGININE ASPARTATE [Concomitant]
     Indication: IMMUNODEFICIENCY
     Dosage: UNK
  5. ARGININE ASPARTATE [Concomitant]
     Indication: NERVOUS SYSTEM DISORDER
  6. NOOTROPIL [Concomitant]
     Indication: NERVOUS SYSTEM DISORDER
     Dosage: 400 MG, UNK

REACTIONS (2)
  - HEADACHE [None]
  - INTRAOCULAR PRESSURE INCREASED [None]
